FAERS Safety Report 5243864-4 (Version None)
Quarter: 2007Q1

REPORT INFORMATION
  Report Type: 
  Country: None (occurrence: None)
  Receive Date: 20070222
  Receipt Date: 20070214
  Transmission Date: 20070707
  Serious: Yes (Death, Life-Threatening, Other)
  Sender: FDA-Public Use
  Company Number: IT-BRISTOL-MYERS SQUIBB COMPANY-13663604

PATIENT
  Age: 76 Year
  Sex: Male

DRUGS (7)
  1. DASATINIB [Suspect]
     Route: 048
     Dates: start: 20060606, end: 20070122
  2. HYDROXYUREA [Suspect]
  3. DILATREND [Concomitant]
     Dates: start: 19980101
  4. LANOXIN [Concomitant]
     Dates: start: 19980101
  5. LASIX [Concomitant]
     Dates: start: 19980101
  6. NITRO-DUR [Concomitant]
     Dates: start: 19980101
  7. ASPIRIN [Concomitant]
     Dates: start: 19980101

REACTIONS (4)
  - CARDIAC ARREST [None]
  - CARDIAC FAILURE ACUTE [None]
  - MALIGNANT NEOPLASM PROGRESSION [None]
  - PLEURAL EFFUSION [None]
